FAERS Safety Report 8206551-6 (Version None)
Quarter: 2012Q1

REPORT INFORMATION
  Report Type: 
  Country: None (occurrence: None)
  Receive Date: 20120313
  Receipt Date: 20120306
  Transmission Date: 20120608
  Serious: Yes (Death, Hospitalization)
  Sender: FDA-Public Use
  Company Number: JP-MERCK-1202USA02860

PATIENT
  Age: 72 Year
  Sex: Male
  Weight: 60 kg

DRUGS (11)
  1. IDAMYCIN [Concomitant]
     Indication: ACUTE PROMYELOCYTIC LEUKAEMIA
     Route: 042
     Dates: start: 20100829, end: 20100904
  2. INSULIN [Concomitant]
     Route: 042
  3. ZOSYN [Concomitant]
     Route: 042
     Dates: start: 20100829, end: 20100909
  4. AMBISOME [Concomitant]
     Route: 042
     Dates: start: 20100910, end: 20100918
  5. VESANOID [Concomitant]
     Indication: ACUTE PROMYELOCYTIC LEUKAEMIA
     Dosage: 45MG/M2
     Route: 048
     Dates: start: 20100828, end: 20100918
  6. DECADRON [Suspect]
     Indication: RETINOIC ACID SYNDROME
     Route: 048
     Dates: start: 20100828, end: 20100918
  7. TARGOCID [Concomitant]
     Route: 042
     Dates: start: 20100907, end: 20100910
  8. CIPROFLOXACIN [Concomitant]
     Route: 048
     Dates: start: 20100828, end: 20100901
  9. ARMODAFINIL [Concomitant]
     Route: 048
     Dates: start: 20100828, end: 20100910
  10. HABEKACIN [Concomitant]
     Route: 042
     Dates: start: 20100910, end: 20100918
  11. DORIPENEM MONOHYDRATE [Concomitant]
     Route: 042
     Dates: start: 20100910, end: 20100918

REACTIONS (3)
  - PNEUMONIA [None]
  - ZYGOMYCOSIS [None]
  - DIABETES MELLITUS [None]
